FAERS Safety Report 5711600-0 (Version None)
Quarter: 2008Q2

REPORT INFORMATION
  Report Type: 
  Country: None (occurrence: None)
  Receive Date: 20080416
  Receipt Date: 20080408
  Transmission Date: 20081010
  Serious: Yes (Other)
  Sender: FDA-Public Use
  Company Number: THQ2008A00650

PATIENT
  Age: 76 Year
  Sex: Female

DRUGS (8)
  1. ACTOS [Suspect]
     Indication: DIABETES MELLITUS
     Dosage: 30 MG (30 MG, 1 IN 1 D) PER ORAL
     Route: 048
     Dates: start: 20071011, end: 20080321
  2. AMLODIPINE, VALSARTAN [Concomitant]
  3. TRINIPATCH (GLYCERYL TRINITRATE) [Concomitant]
  4. SOLOSA (GLIMEPIRIDE) [Concomitant]
  5. PLAVIX [Concomitant]
  6. LIPITOR [Concomitant]
  7. ALLOPURINOL [Concomitant]
  8. CHLORTHALIDONE [Concomitant]

REACTIONS (5)
  - FLUID RETENTION [None]
  - LOCALISED OEDEMA [None]
  - PULMONARY OEDEMA [None]
  - WEIGHT DECREASED [None]
  - WEIGHT INCREASED [None]
